FAERS Safety Report 18476671 (Version 1)
Quarter: 2020Q4

REPORT INFORMATION
  Report Type: Spontaneous
  Country: US (occurrence: US)
  Receive Date: 20201107
  Receipt Date: 20201107
  Transmission Date: 20210114
  Serious: No
  Sender: FDA-Public Use
  Company Number: NVSC2020US289782

PATIENT
  Sex: Female
  Weight: 24 kg

DRUGS (1)
  1. ILARIS [Suspect]
     Active Substance: CANAKINUMAB
     Indication: STILL^S DISEASE
     Dosage: 100 MG, QMO, BENEATH THE SKIN
     Route: 058
     Dates: start: 20200803, end: 20201027

REACTIONS (1)
  - Drug ineffective [Not Recovered/Not Resolved]
